FAERS Safety Report 5207936-2 (Version None)
Quarter: 2007Q1

REPORT INFORMATION
  Report Type: 
  Country: None (occurrence: None)
  Receive Date: 20070110
  Receipt Date: 20070104
  Transmission Date: 20070707
  Serious: Yes (Other)
  Sender: FDA-Public Use
  Company Number: 2007AP000013

PATIENT

DRUGS (1)
  1. PAROXETINE HCL [Suspect]
     Indication: OBSESSIVE-COMPULSIVE DISORDER
     Dosage: 40 MG; TRPL
     Route: 064
     Dates: start: 20050201

REACTIONS (4)
  - CONGENITAL FLOPPY INFANT [None]
  - CONGENITAL VISUAL ACUITY REDUCED [None]
  - DRUG EXPOSURE DURING PREGNANCY [None]
  - PREGNANCY [None]
